FAERS Safety Report 15309807 (Version 1)
Quarter: 2018Q3

REPORT INFORMATION
  Report Type: Spontaneous
  Country: US (occurrence: US)
  Receive Date: 20180823
  Receipt Date: 20180823
  Transmission Date: 20181010
  Serious: No
  Sender: FDA-Public Use
  Company Number: US-JNJFOC-20180811030

PATIENT
  Sex: Female
  Weight: 54 kg

DRUGS (8)
  1. IMBRUVICA [Concomitant]
     Active Substance: IBRUTINIB
     Indication: NON-HODGKIN^S LYMPHOMA
     Route: 048
     Dates: start: 201711
  2. POTASSIUM [Concomitant]
     Active Substance: POTASSIUM
  3. ATENOLOL. [Concomitant]
     Active Substance: ATENOLOL
  4. AMLODIPINE [Concomitant]
     Active Substance: AMLODIPINE BESYLATE
  5. TYLENOL [Concomitant]
     Active Substance: ACETAMINOPHEN
  6. HYDRALAZINE [Concomitant]
     Active Substance: HYDRALAZINE HYDROCHLORIDE
  7. GABAPENTIN. [Concomitant]
     Active Substance: GABAPENTIN
  8. IMBRUVICA [Suspect]
     Active Substance: IBRUTINIB
     Indication: NON-HODGKIN^S LYMPHOMA
     Route: 048
     Dates: start: 201805, end: 201806

REACTIONS (7)
  - Asthenia [Unknown]
  - Diarrhoea [Unknown]
  - Hypertension [Unknown]
  - Malaise [Unknown]
  - Off label use [Unknown]
  - Drug ineffective [Unknown]
  - Incorrect dose administered [Unknown]

NARRATIVE: CASE EVENT DATE: 2018
